FAERS Safety Report 21875912 (Version 1)
Quarter: 2023Q1

REPORT INFORMATION
  Report Type: Spontaneous
  Country: US (occurrence: None)
  Receive Date: 20230118
  Receipt Date: 20230118
  Transmission Date: 20230418
  Serious: Yes (Life-Threatening, Hospitalization, Other)
  Sender: FDA-Public Use
  Company Number: US-MLMSERVICE-20221229-4011789-1

PATIENT
  Age: 43 Year
  Sex: Male

DRUGS (1)
  1. HALOPERIDOL [Suspect]
     Active Substance: HALOPERIDOL
     Indication: Postictal psychosis
     Dosage: UNKNOWN
     Route: 065

REACTIONS (2)
  - Cardiac arrest [Recovered/Resolved]
  - Ventricular tachycardia [Unknown]
